FAERS Safety Report 5992586-0 (Version None)
Quarter: 2008Q4

REPORT INFORMATION
  Report Type: 
  Country: None (occurrence: None)
  Receive Date: 20081202
  Receipt Date: 20071130
  Transmission Date: 20090506
  Serious: Yes (Other)
  Sender: FDA-Public Use
  Company Number: WAES 0708USA02522

PATIENT
  Age: 79 Year
  Sex: Female

DRUGS (1)
  1. FOSAMAX [Suspect]
     Indication: OSTEOPOROSIS
     Dosage: 70 MG/WKY/PO
     Route: 048
     Dates: start: 20040101, end: 20060301

REACTIONS (5)
  - DIARRHOEA [None]
  - OSTEOMYELITIS [None]
  - OSTEONECROSIS [None]
  - RASH [None]
  - TOOTH ABSCESS [None]
